FAERS Safety Report 6342936-0 (Version None)
Quarter: 2009Q3

REPORT INFORMATION
  Report Type: 
  Country: None (occurrence: None)
  Receive Date: 20090821
  Receipt Date: 20090709
  Transmission Date: 20100115
  Serious: No
  Sender: FDA-Public Use
  Company Number: 8047616

PATIENT
  Sex: Male
  Weight: 90.7 kg

DRUGS (4)
  1. CIMZIA [Suspect]
     Dosage: 400 MG SC
     Route: 058
     Dates: start: 20090113
  2. PENTASA [Concomitant]
  3. PAXIL [Concomitant]
  4. NEXIUM [Concomitant]

REACTIONS (5)
  - ABDOMINAL PAIN [None]
  - HAEMATOCHEZIA [None]
  - HEADACHE [None]
  - INAPPROPRIATE SCHEDULE OF DRUG ADMINISTRATION [None]
  - PAIN [None]
